FAERS Safety Report 21292642 (Version 1)
Quarter: 2022Q3

REPORT INFORMATION
  Report Type: Spontaneous
  Country: US (occurrence: US)
  Receive Date: 20220905
  Receipt Date: 20220905
  Transmission Date: 20221027
  Serious: No
  Sender: FDA-Public Use
  Company Number: US-ELI_LILLY_AND_COMPANY-US202209001362

PATIENT
  Sex: Female

DRUGS (2)
  1. TALTZ [Suspect]
     Active Substance: IXEKIZUMAB
     Indication: Rheumatoid arthritis
     Dosage: 80 MG, UNKNOWN
     Route: 058
     Dates: start: 2021
  2. TALTZ [Suspect]
     Active Substance: IXEKIZUMAB
     Indication: Rheumatoid arthritis
     Dosage: 80 MG, UNKNOWN
     Route: 058
     Dates: start: 2021

REACTIONS (2)
  - Injection site swelling [Recovered/Resolved]
  - Off label use [Unknown]
